FAERS Safety Report 7610297-2 (Version None)
Quarter: 2011Q3

REPORT INFORMATION
  Report Type: 
  Country: None (occurrence: None)
  Receive Date: 20110706
  Receipt Date: 20110623
  Transmission Date: 20111222
  Serious: Yes (Hospitalization)
  Sender: FDA-Public Use
  Company Number: AUR-APL-2011-00173

PATIENT
  Age: 16 Year
  Sex: Female
  Weight: 60 kg

DRUGS (3)
  1. LAMOTRIGINE [Concomitant]
  2. TOPIRAMATE [Suspect]
     Indication: EPILEPSY
     Dosage: 300 MG (150 MG, 2 IN 1 D), ORAL
     Route: 048
     Dates: start: 20101108, end: 20101210
  3. CLOBAZAM (CLOBAZAM) [Concomitant]

REACTIONS (4)
  - DEPERSONALISATION [None]
  - MEMORY IMPAIRMENT [None]
  - HALLUCINATION, VISUAL [None]
  - SENSORY DISTURBANCE [None]
